FAERS Safety Report 9315738 (Version 2)
Quarter: 2013Q3

REPORT INFORMATION
  Report Type: Spontaneous
  Country: US (occurrence: US)
  Receive Date: 20130529
  Receipt Date: 20130724
  Transmission Date: 20140515
  Serious: Yes (Death, Other)
  Sender: FDA-Public Use
  Company Number: US-GILEAD-2013-0075906

PATIENT
  Age: 84 Year
  Sex: Male

DRUGS (1)
  1. LETAIRIS [Suspect]
     Indication: PRODUCT USED FOR UNKNOWN INDICATION
     Dosage: 10 MG, QD
     Dates: start: 20120509, end: 20130418

REACTIONS (6)
  - Death [Fatal]
  - Pulmonary hypertension [Unknown]
  - Renal failure acute [Unknown]
  - Acute respiratory failure [Unknown]
  - Septic shock [Unknown]
  - Pneumonia [Unknown]
